FAERS Safety Report 17111606 (Version 1)
Quarter: 2019Q4

REPORT INFORMATION
  Report Type: Spontaneous
  Country: US (occurrence: US)
  Receive Date: 20191204
  Receipt Date: 20191204
  Transmission Date: 20200122
  Serious: Yes (Hospitalization, Other)
  Sender: FDA-Public Use
  Company Number: US-PFIZER INC-2019524230

PATIENT

DRUGS (1)
  1. VENLAFAXINE HCL [Suspect]
     Active Substance: VENLAFAXINE HYDROCHLORIDE
     Dosage: 4 DF, DAILY (FOUR PILLS A DAY )

REACTIONS (4)
  - Myocardial infarction [Unknown]
  - Anxiety [Unknown]
  - Condition aggravated [Unknown]
  - Nausea [Unknown]
